FAERS Safety Report 5859570-9 (Version None)
Quarter: 2008Q3

REPORT INFORMATION
  Report Type: 
  Country: None (occurrence: None)
  Receive Date: 20080827
  Receipt Date: 20080822
  Transmission Date: 20090109
  Serious: Yes (Hospitalization)
  Sender: FDA-Public Use
  Company Number: B0524510A

PATIENT
  Age: 49 Year
  Sex: Female
  Weight: 52.1 kg

DRUGS (2)
  1. LAPATINIB [Suspect]
     Dosage: 1250MG PER DAY
     Route: 048
     Dates: start: 20080520
  2. CAPECITABINE [Suspect]
     Dosage: 1000MGM2 TWICE PER DAY
     Route: 048
     Dates: start: 20080520

REACTIONS (3)
  - BODY TEMPERATURE INCREASED [None]
  - INFECTION [None]
  - WOUND SECRETION [None]
